FAERS Safety Report 4428367-9 (Version None)
Quarter: 2004Q3

REPORT INFORMATION
  Report Type: 
  Country: None (occurrence: None)
  Receive Date: 20040813
  Receipt Date: 20040802
  Transmission Date: 20050211
  Serious: Yes (Other)
  Sender: FDA-Public Use
  Company Number: 2004GB01892

PATIENT
  Age: 25 Year
  Sex: Male

DRUGS (2)
  1. SEROQUEL [Suspect]
     Dosage: 500 MG DAILY PO
     Route: 048
     Dates: start: 20030301
  2. CANNABIS [Concomitant]

REACTIONS (1)
  - BLOOD TEST ABNORMAL [None]
